FAERS Safety Report 8799352 (Version 1)
Quarter: 2012Q4

REPORT INFORMATION
  Report Type: 
  Country: JP (occurrence: JP)
  Receive Date: 20120919
  Receipt Date: 20120919
  Transmission Date: 20130627
  Serious: Yes (Death)
  Sender: FDA-Public Use
  Company Number: JP-ASTELLAS-2012JP008550

PATIENT
  Age: 62 Year
  Sex: Male

DRUGS (9)
  1. FUNGUARD [Suspect]
     Route: 042
  2. MIDAZOLAM [Suspect]
     Indication: SEDATIVE THERAPY
     Route: 065
  3. BETAMIPRON W/ PANIPENEM [Suspect]
     Indication: HAEMOTHORAX
     Route: 042
  4. BETAMIPRON W/ PANIPENEM [Suspect]
     Indication: INFECTIOUS PLEURAL EFFUSION
  5. VANCOMYCIN [Suspect]
     Route: 065
  6. GENTAMICIN [Suspect]
     Route: 065
  7. MEROPENEM [Suspect]
     Route: 065
  8. OMEPRAZOLE [Concomitant]
     Route: 042
  9. SIVELESTAT SODIUM [Concomitant]
     Indication: ACUTE RESPIRATORY DISTRESS SYNDROME
     Route: 065

REACTIONS (8)
  - Hepatic failure [Fatal]
  - Inflammation [None]
  - Pneumothorax [None]
  - Acute respiratory failure [None]
  - Staphylococcal infection [None]
  - Pseudomonas infection [None]
  - Haemophilus infection [None]
  - Bacterial test positive [None]
